FAERS Safety Report 7097454-1 (Version None)
Quarter: 2010Q4

REPORT INFORMATION
  Report Type: 
  Country: None (occurrence: None)
  Receive Date: 20101111
  Receipt Date: 20101109
  Transmission Date: 20110411
  Serious: Yes (Other)
  Sender: FDA-Public Use
  Company Number: SE-PFIZER INC-2010118574

PATIENT
  Age: 40 Year
  Sex: Female
  Weight: 104 kg

DRUGS (1)
  1. CHAMPIX [Suspect]
     Indication: SMOKING CESSATION THERAPY
     Dosage: 1 MG, 2X/DAY
     Route: 048
     Dates: start: 20100617, end: 20100701

REACTIONS (5)
  - GENITAL BURNING SENSATION [None]
  - METRORRHAGIA [None]
  - OEDEMA PERIPHERAL [None]
  - SELF-MEDICATION [None]
  - THERAPEUTIC PRODUCT INEFFECTIVE [None]
